FAERS Safety Report 7764003-1 (Version None)
Quarter: 2011Q3

REPORT INFORMATION
  Report Type: 
  Country: None (occurrence: None)
  Receive Date: 20110921
  Receipt Date: 20110915
  Transmission Date: 20111222
  Serious: No
  Sender: FDA-Public Use
  Company Number: US-PFIZER INC-2011220471

PATIENT
  Sex: Male
  Weight: 109 kg

DRUGS (11)
  1. GABAPENTIN [Suspect]
     Indication: THROMBOSIS
  2. GABAPENTIN [Suspect]
     Indication: PAIN
  3. XANAX [Concomitant]
     Indication: ANXIETY
     Dosage: 1 MG, DAILY
  4. GABAPENTIN [Suspect]
     Indication: OEDEMA PERIPHERAL
  5. PRILOSEC [Concomitant]
     Indication: GASTROOESOPHAGEAL REFLUX DISEASE
     Dosage: 20 MG, DAILY
  6. CELEBREX [Concomitant]
     Indication: PAIN
     Dosage: 200 MG, DAILY
  7. GABAPENTIN [Suspect]
     Indication: DEEP VEIN THROMBOSIS
     Dosage: 100 MG, 3X/DAY
     Route: 048
     Dates: start: 20030101, end: 20110901
  8. GABAPENTIN [Suspect]
  9. CELEBREX [Concomitant]
     Indication: OEDEMA PERIPHERAL
  10. GABAPENTIN [Suspect]
     Indication: NEURALGIA
  11. VICODIN ES [Concomitant]
     Indication: PAIN
     Dosage: 85/500 MG,DAILY

REACTIONS (2)
  - DRUG DISPENSING ERROR [None]
  - HYPOKINESIA [None]
